FAERS Safety Report 8731980 (Version 2)
Quarter: 2013Q4

REPORT INFORMATION
  Report Type: Spontaneous
  Country: US (occurrence: US)
  Receive Date: 20120820
  Receipt Date: 20131031
  Transmission Date: 20140711
  Serious: Yes (Other)
  Sender: FDA-Public Use
  Company Number: US-009507513-2012SP029420

PATIENT
  Age: 33 Year
  Sex: Male

DRUGS (2)
  1. COPPERTONE WATER BABIES LOTION SPF-50 [Suspect]
     Indication: PROPHYLAXIS AGAINST SOLAR RADIATION
     Dosage: 5 DF, UNKNOWN
     Route: 061
     Dates: start: 20120521, end: 20120522
  2. COPPERTONE WATER BABIES LOTION SPF-50 [Suspect]
     Indication: MEDICAL OBSERVATION

REACTIONS (3)
  - Hypersensitivity [Recovered/Resolved]
  - Rash [Recovered/Resolved]
  - Burning sensation [Recovered/Resolved]
